FAERS Safety Report 4959939-0 (Version None)
Quarter: 2006Q1

REPORT INFORMATION
  Report Type: 
  Country: None (occurrence: None)
  Receive Date: 20060331
  Receipt Date: 20040121
  Transmission Date: 20060701
  Serious: Yes (Hospitalization, Disabling, Other)
  Sender: FDA-Public Use
  Company Number: US-MERCK-0401USA01505

PATIENT
  Age: 50 Year
  Sex: Female
  Weight: 64 kg

DRUGS (3)
  1. VIOXX [Suspect]
     Indication: POLYARTHRITIS
     Route: 048
     Dates: start: 20000201, end: 20010701
  2. VIOXX [Suspect]
     Route: 048
  3. ACETAMINOPHEN [Concomitant]
     Route: 065

REACTIONS (22)
  - ANAL DISCOMFORT [None]
  - ANAL FISSURE [None]
  - BRONCHITIS [None]
  - CEREBROVASCULAR ACCIDENT [None]
  - CHRONIC LYMPHOCYTIC LEUKAEMIA [None]
  - COLONIC POLYP [None]
  - DERMATITIS CONTACT [None]
  - DIARRHOEA [None]
  - ERUCTATION [None]
  - EYE MOVEMENT DISORDER [None]
  - FATIGUE [None]
  - HOT FLUSH [None]
  - HYPERCALCAEMIA [None]
  - LUNG DISORDER [None]
  - LYMPHADENOPATHY [None]
  - NEURODERMATITIS [None]
  - POLLAKIURIA [None]
  - RECTAL HAEMORRHAGE [None]
  - RESTLESS LEGS SYNDROME [None]
  - TENSION HEADACHE [None]
  - THYROID NEOPLASM [None]
  - VOMITING [None]
